FAERS Safety Report 8358307-1 (Version None)
Quarter: 2012Q2

REPORT INFORMATION
  Report Type: 
  Country: None (occurrence: None)
  Receive Date: 20120514
  Receipt Date: 20110419
  Transmission Date: 20120825
  Serious: No
  Sender: FDA-Public Use
  Company Number: US-ALEXION-A201100561

PATIENT
  Sex: Female

DRUGS (5)
  1. SOLIRIS [Suspect]
     Indication: PAROXYSMAL NOCTURNAL HAEMOGLOBINURIA
     Dosage: 900 MG, UNK
     Route: 042
     Dates: start: 20100511
  2. IRON [Concomitant]
     Dosage: UNK
  3. PRAVASTATIN [Concomitant]
     Indication: BLOOD CHOLESTEROL INCREASED
     Dosage: UNK
  4. FOLIC ACID [Concomitant]
     Dosage: UNK
  5. FLUOXETINE [Concomitant]
     Dosage: 10 MG, UNK

REACTIONS (6)
  - RHINORRHOEA [None]
  - OROPHARYNGEAL PAIN [None]
  - CHROMATURIA [None]
  - NASAL CONGESTION [None]
  - PAIN [None]
  - HEADACHE [None]
